FAERS Safety Report 9606618 (Version 1)
Quarter: 2013Q4

REPORT INFORMATION
  Report Type: Spontaneous
  Country: US (occurrence: US)
  Receive Date: 20131008
  Receipt Date: 20131008
  Transmission Date: 20140711
  Serious: No
  Sender: FDA-Public Use
  Company Number: US-AMGEN-USASP2013057497

PATIENT
  Age: 71 Year
  Sex: Female

DRUGS (10)
  1. PROLIA [Suspect]
     Indication: OSTEOPOROSIS POSTMENOPAUSAL
     Dosage: UNK
     Route: 065
     Dates: start: 20130307
  2. BACLOFEN [Concomitant]
  3. CAPSAICIN [Concomitant]
  4. METOPROLOL [Concomitant]
  5. VITAMIN D3 [Concomitant]
     Dosage: 2000 IU, UNK
  6. KRILL OIL [Concomitant]
  7. CALCIUM [Concomitant]
  8. TRAMADOL [Concomitant]
     Indication: BACK PAIN
  9. TYLENOL                            /00020001/ [Concomitant]
  10. VITAMIN D                          /00107901/ [Concomitant]
     Dosage: 2000 IU, UNK

REACTIONS (2)
  - Loose tooth [Unknown]
  - Sleep disorder [Unknown]
